FAERS Safety Report 11422346 (Version 3)
Quarter: 2017Q1

REPORT INFORMATION
  Report Type: Spontaneous
  Country: US (occurrence: US)
  Receive Date: 20150827
  Receipt Date: 20170106
  Transmission Date: 20170428
  Serious: Yes (Other)
  Sender: FDA-Public Use
  Company Number: US-SA-2015SA128487

PATIENT
  Age: 83 Year
  Sex: Female
  Weight: 63.5 kg

DRUGS (1)
  1. GOLD BOND EXTRA STRENGTH LOTION [Suspect]
     Active Substance: DIMETHICONE\MENTHOL
     Dosage: DOSAGE FORM:LOTION
     Route: 065

REACTIONS (4)
  - Asthma [Unknown]
  - Cough [Unknown]
  - Nausea [Recovered/Resolved]
  - Headache [Recovered/Resolved]
